FAERS Safety Report 4503903-2 (Version None)
Quarter: 2004Q4

REPORT INFORMATION
  Report Type: 
  Country: None (occurrence: None)
  Receive Date: 20041115
  Receipt Date: 20041112
  Transmission Date: 20050328
  Serious: Yes (Life-Threatening, Hospitalization)
  Sender: FDA-Public Use
  Company Number: A044-002-005306

PATIENT
  Age: 78 Year
  Sex: Male

DRUGS (1)
  1. ARICEPT [Suspect]
     Indication: DEMENTIA
     Dosage: 5 MG, 1 IN 1 D, ORAL
     Route: 048
     Dates: start: 20040301, end: 20041021

REACTIONS (8)
  - AMNESIA [None]
  - CARDIAC ARREST [None]
  - DIZZINESS [None]
  - HYPERHIDROSIS [None]
  - LOSS OF CONSCIOUSNESS [None]
  - SINUS ARREST [None]
  - SINUS BRADYCARDIA [None]
  - SYNCOPE [None]
